FAERS Safety Report 17689235 (Version 2)
Quarter: 2020Q2

REPORT INFORMATION
  Report Type: Report from Study
  Country: US (occurrence: US)
  Receive Date: 20200421
  Receipt Date: 20200529
  Transmission Date: 20200714
  Serious: Yes (Other)
  Sender: FDA-Public Use
  Company Number: US-GILEAD-2020-0459986

PATIENT
  Age: 54 Year
  Sex: Male
  Weight: 73.5 kg

DRUGS (4)
  1. MOXIFLOXACIN. [Concomitant]
     Active Substance: MOXIFLOXACIN
     Indication: MYCOBACTERIUM AVIUM COMPLEX INFECTION
     Dosage: 400 MG, QD
     Route: 048
     Dates: start: 202001
  2. ETHAMBUTOL [Suspect]
     Active Substance: ETHAMBUTOL HYDROCHLORIDE
     Indication: MYCOBACTERIUM AVIUM COMPLEX INFECTION
     Dosage: 1200 MG, QD
     Route: 048
     Dates: start: 202001
  3. AZITHROMYCIN ANHYDROUS. [Suspect]
     Active Substance: AZITHROMYCIN ANHYDROUS
     Indication: MYCOBACTERIUM AVIUM COMPLEX INFECTION
     Dosage: 600 MG, QD
     Route: 048
     Dates: start: 202001
  4. ELVITEGRAVIR/COBICISTAT/EMTRICITABINE/TENOFOVIR ALAFENAMIDE [Suspect]
     Active Substance: COBICISTAT\ELVITEGRAVIR\EMTRICITABINE\TENOFOVIR
     Indication: HIV INFECTION
     Dosage: 510 MG, QD
     Route: 048

REACTIONS (4)
  - Drug ineffective [Unknown]
  - Drug interaction [Unknown]
  - Mycobacterium avium complex infection [Not Recovered/Not Resolved]
  - Viral load increased [Unknown]

NARRATIVE: CASE EVENT DATE: 202001
